FAERS Safety Report 4435311-7 (Version None)
Quarter: 2004Q3

REPORT INFORMATION
  Report Type: 
  Country: None (occurrence: None)
  Receive Date: 20040827
  Receipt Date: 20040827
  Transmission Date: 20050211
  Serious: Yes (Other)
  Sender: FDA-Public Use
  Company Number: None

PATIENT
  Age: 52 Year
  Sex: Female
  Weight: 72.2 kg

DRUGS (1)
  1. ESTROGENS-CONJUGATED- 0.625 MG [Suspect]
     Indication: MENOPAUSAL SYMPTOMS
     Dosage: 0.625 DAILY ORAL
     Route: 048
     Dates: start: 20040104, end: 20040809

REACTIONS (2)
  - OEDEMA PERIPHERAL [None]
  - PAIN IN EXTREMITY [None]
